FAERS Safety Report 6316886-X (Version None)
Quarter: 2009Q3

REPORT INFORMATION
  Report Type: 
  Country: None (occurrence: None)
  Receive Date: 20090820
  Receipt Date: 20090817
  Transmission Date: 20100115
  Serious: Yes (Hospitalization)
  Sender: FDA-Public Use
  Company Number: US-GENENTECH-288810

PATIENT
  Age: 33 Year
  Sex: Female
  Weight: 123.81 kg

DRUGS (4)
  1. BEVACIZUMAB [Suspect]
     Indication: BREAST CANCER
     Dosage: UNK
  2. DOXORUBICIN HCL [Suspect]
     Indication: BREAST CANCER
     Dosage: 137 MG, Q2W
     Route: 042
     Dates: start: 20090708
  3. CYCLOPHOSPHAMIDE [Suspect]
     Indication: BREAST CANCER
     Dosage: 1368 MG, Q2W
     Route: 042
     Dates: start: 20090708
  4. ABRAXANE [Suspect]
     Indication: BREAST CANCER
     Dosage: UNK

REACTIONS (1)
  - ANAEMIA [None]
